FAERS Safety Report 7108024-0 (Version None)
Quarter: 2010Q4

REPORT INFORMATION
  Report Type: 
  Country: None (occurrence: None)
  Receive Date: 20101109
  Receipt Date: 20101028
  Transmission Date: 20110411
  Serious: Yes (Hospitalization, Disabling)
  Sender: FDA-Public Use
  Company Number: 2009SP043060

PATIENT
  Age: 20 Year
  Sex: Female
  Weight: 63.9572 kg

DRUGS (7)
  1. NUVARING [Suspect]
     Indication: ACNE
     Dates: start: 20051001, end: 20060201
  2. NUVARING [Suspect]
     Indication: CONTRACEPTION
     Dates: start: 20051001, end: 20060201
  3. NUVARING [Suspect]
     Indication: ACNE
     Dates: start: 20060401, end: 20060701
  4. NUVARING [Suspect]
     Indication: CONTRACEPTION
     Dates: start: 20060401, end: 20060701
  5. LEXAPRO [Concomitant]
  6. TERAMIN [Concomitant]
  7. PHENTERMINE [Concomitant]

REACTIONS (30)
  - ADNEXA UTERI CYST [None]
  - ANXIETY [None]
  - ASTHENIA [None]
  - BLOOD DISORDER [None]
  - DEEP VEIN THROMBOSIS [None]
  - DEPRESSION [None]
  - DIZZINESS [None]
  - DYSPNOEA [None]
  - FACTOR V LEIDEN MUTATION [None]
  - FATIGUE [None]
  - HEADACHE [None]
  - HYPERHIDROSIS [None]
  - HYPERVENTILATION [None]
  - INTERNATIONAL NORMALISED RATIO DECREASED [None]
  - LEUKOCYTOSIS [None]
  - LOSS OF EMPLOYMENT [None]
  - MAY-THURNER SYNDROME [None]
  - MEDICAL DEVICE DISCOMFORT [None]
  - NAUSEA [None]
  - OROPHARYNGEAL PAIN [None]
  - PARAESTHESIA [None]
  - PARAESTHESIA ORAL [None]
  - POST PROCEDURAL HAEMATURIA [None]
  - POSTOPERATIVE WOUND INFECTION [None]
  - PROTEIN C DECREASED [None]
  - PROTEIN S DECREASED [None]
  - PULMONARY EMBOLISM [None]
  - STRESS [None]
  - URINARY TRACT INFECTION [None]
  - VOMITING [None]
